FAERS Safety Report 9324769 (Version 4)
Quarter: 2013Q3

REPORT INFORMATION
  Report Type: Report from Study
  Country: US (occurrence: US)
  Receive Date: 20130603
  Receipt Date: 20130926
  Transmission Date: 20140515
  Serious: Yes (Other)
  Sender: FDA-Public Use
  Company Number: US-TEVA-409197USA

PATIENT
  Age: 22 Year
  Sex: Female

DRUGS (7)
  1. CLARAVIS [Suspect]
     Dosage: 20 MILLIGRAM DAILY; HS
     Dates: start: 20130301, end: 20130524
  2. NUVA RING [Concomitant]
     Dates: start: 2012, end: 20130519
  3. NORTRIPTYLINE [Concomitant]
     Dates: start: 2010, end: 20130524
  4. PROPRANOLOL [Concomitant]
     Dates: start: 20130412, end: 20130524
  5. VICODIN [Concomitant]
     Dates: start: 2010, end: 20130524
  6. MULTIVITAMIN [Concomitant]
     Dates: start: 2011, end: 20130524
  7. PROCHLORPERAZINE [Concomitant]
     Dates: start: 2010, end: 20130524

REACTIONS (1)
  - Unintended pregnancy [Unknown]
